FAERS Safety Report 9852266 (Version 1)
Quarter: 2014Q1

REPORT INFORMATION
  Report Type: Spontaneous
  Country: US (occurrence: None)
  Receive Date: 20140127
  Receipt Date: 20140127
  Transmission Date: 20141002
  Serious: Yes (Other)
  Sender: FDA-Public Use
  Company Number: 2014P1000313

PATIENT
  Age: 16 Year
  Sex: Female

DRUGS (1)
  1. MYORISAN 40 MG [Suspect]
     Indication: ACNE CYSTIC
     Route: 048
     Dates: start: 20131112, end: 201401

REACTIONS (1)
  - Ligament rupture [None]
